FAERS Safety Report 6981951-0 (Version None)
Quarter: 2010Q3

REPORT INFORMATION
  Report Type: 
  Country: None (occurrence: None)
  Receive Date: 20100914
  Receipt Date: 20091028
  Transmission Date: 20110219
  Serious: No
  Sender: FDA-Public Use
  Company Number: US-PFIZER INC-2009291891

PATIENT
  Sex: Female

DRUGS (5)
  1. LYRICA [Suspect]
     Indication: FIBROMYALGIA
     Dosage: 200 MG, EVERY 4 HOURS
  2. LYRICA [Suspect]
     Indication: PAIN
  3. VITAMIN B-12 [Concomitant]
  4. VITAMIN B6 [Concomitant]
  5. ZINC [Concomitant]

REACTIONS (5)
  - DIARRHOEA [None]
  - FATIGUE [None]
  - HAEMORRHOIDS [None]
  - MUSCLE SPASMS [None]
  - WEIGHT INCREASED [None]
